FAERS Safety Report 6130197-7 (Version None)
Quarter: 2009Q1

REPORT INFORMATION
  Report Type: 
  Country: None (occurrence: None)
  Receive Date: 20090324
  Receipt Date: 20090312
  Transmission Date: 20090719
  Serious: Yes (Hospitalization)
  Sender: FDA-Public Use
  Company Number: ES-ELI_LILLY_AND_COMPANY-ES200903003577

PATIENT
  Age: 76 Year
  Sex: Female

DRUGS (3)
  1. FORTEO [Suspect]
     Indication: OSTEOPOROSIS
     Dosage: 20 UG, UNK
     Route: 058
     Dates: start: 20080101
  2. PREDNISOLONE [Concomitant]
  3. ARTEDIL [Concomitant]

REACTIONS (4)
  - BLOOD URINE PRESENT [None]
  - DYSURIA [None]
  - PYREXIA [None]
  - URINARY TRACT INFECTION [None]
